FAERS Safety Report 21218037 (Version 1)
Quarter: 2022Q3

REPORT INFORMATION
  Report Type: Spontaneous
  Country: US (occurrence: None)
  Receive Date: 20220816
  Receipt Date: 20220816
  Transmission Date: 20221027
  Serious: Yes (Other)
  Sender: FDA-Public Use
  Company Number: None

PATIENT
  Age: 53 Year
  Sex: Female
  Weight: 14.97 kg

DRUGS (11)
  1. EVUSHELD [Suspect]
     Active Substance: CILGAVIMAB\TIXAGEVIMAB
     Indication: Product used for unknown indication
     Dosage: ONCE
     Dates: start: 20220126, end: 20220126
  2. CALCIUM [Concomitant]
     Active Substance: CALCIUM
  3. MAGNESIUM [Concomitant]
     Active Substance: MAGNESIUM
  4. VITAMIN D NOS [Concomitant]
     Active Substance: VITAMIN D NOS
  5. VITAMIN B COMPLEX [Concomitant]
     Active Substance: CYANOCOBALAMIN\DEXPANTHENOL\NIACINAMIDE\PYRIDOXINE HYDROCHLORIDE\RIBOFLAVIN 5^-PHOSPHATE SODIUM\THIA
  6. RITUXIMAB [Concomitant]
     Active Substance: RITUXIMAB
  7. EVENITY [Concomitant]
     Active Substance: ROMOSOZUMAB-AQQG
  8. VITAMIN C [Concomitant]
     Active Substance: ASCORBIC ACID
  9. MELATONIN [Concomitant]
     Active Substance: MELATONIN
  10. CANNABIS SATIVA SUBSP. INDICA TOP [Concomitant]
     Active Substance: CANNABIS SATIVA SUBSP. INDICA TOP
  11. VALERIAN [Concomitant]
     Active Substance: VALERIAN

REACTIONS (12)
  - Pyrexia [None]
  - Chills [None]
  - Nausea [None]
  - Headache [None]
  - Pain [None]
  - Vomiting [None]
  - Cough [None]
  - Fatigue [None]
  - Nasal congestion [None]
  - Hepatic enzyme increased [None]
  - Bedridden [None]
  - Therapy cessation [None]

NARRATIVE: CASE EVENT DATE: 20220128
